FAERS Safety Report 25273993 (Version 2)
Quarter: 2025Q2

REPORT INFORMATION
  Report Type: Spontaneous
  Country: HK (occurrence: HK)
  Receive Date: 20250506
  Receipt Date: 20250509
  Transmission Date: 20250717
  Serious: Yes (Hospitalization, Other)
  Sender: SANOFI AVENTIS
  Company Number: HK-SANOFI-02503629

PATIENT
  Sex: Female

DRUGS (1)
  1. DUPIXENT [Suspect]
     Active Substance: DUPILUMAB
     Indication: Urticarial dermatitis
     Dates: start: 20250128, end: 20250128

REACTIONS (6)
  - Type III immune complex mediated reaction [Unknown]
  - Seronegative arthritis [Unknown]
  - Arthralgia [Unknown]
  - Movement disorder [Unknown]
  - Serum sickness-like reaction [Unknown]
  - Product use in unapproved indication [Unknown]

NARRATIVE: CASE EVENT DATE: 20250101
